FAERS Safety Report 23568929 (Version 1)
Quarter: 2024Q1

REPORT INFORMATION
  Report Type: Report from Study
  Country: US (occurrence: US)
  Receive Date: 20240227
  Receipt Date: 20240227
  Transmission Date: 20240410
  Serious: No
  Sender: FDA-Public Use
  Company Number: US-ORG100014127-2023000844

PATIENT
  Age: 62 Year
  Sex: Male

DRUGS (1)
  1. METOPIRONE [Suspect]
     Active Substance: METYRAPONE
     Indication: Adrenal disorder
     Dosage: 01 CAPSULE (250 MG) 04 TIMES DAILY
     Route: 048
     Dates: start: 20230628, end: 20230723

REACTIONS (1)
  - Off label use [Unknown]

NARRATIVE: CASE EVENT DATE: 20230628
